FAERS Safety Report 5142626-6 (Version None)
Quarter: 2006Q4

REPORT INFORMATION
  Report Type: 
  Country: None (occurrence: None)
  Receive Date: 20061027
  Receipt Date: 20061013
  Transmission Date: 20070319
  Serious: Yes (Hospitalization)
  Sender: FDA-Public Use
  Company Number: US200610002403

PATIENT
  Age: 57 Year
  Sex: Female

DRUGS (10)
  1. HUMULIN R [Suspect]
     Indication: DIABETES MELLITUS
     Dosage: AS NEEDED, PER SLIDING SCALE
     Dates: start: 20040101
  2. HYDROXYZINE [Concomitant]
  3. ZOLOFT [Concomitant]
  4. ASPIRIN [Concomitant]
  5. PLAVIX [Concomitant]
  6. COZAAR [Concomitant]
  7. ALPRAZOLAM [Concomitant]
  8. GLYBURIDE [Concomitant]
  9. METFORMIN HCL [Concomitant]
  10. ANTIHYPERTENSIVES [Concomitant]

REACTIONS (11)
  - ANXIETY [None]
  - BLOOD GLUCOSE INCREASED [None]
  - CEREBROVASCULAR ACCIDENT [None]
  - EXPIRED DRUG ADMINISTERED [None]
  - FEELING ABNORMAL [None]
  - INSOMNIA [None]
  - IRREGULAR SLEEP PHASE [None]
  - NERVOUSNESS [None]
  - STARVATION [None]
  - TREMOR [None]
  - URTICARIA [None]
